FAERS Safety Report 5372360-9 (Version None)
Quarter: 2007Q2

REPORT INFORMATION
  Report Type: 
  Country: None (occurrence: None)
  Receive Date: 20070619
  Receipt Date: 20070518
  Transmission Date: 20071010
  Serious: No
  Sender: FDA-Public Use
  Company Number: 2007US001223

PATIENT
  Age: 79 Hour
  Sex: 0

DRUGS (1)
  1. VESICARE [Suspect]
     Indication: DRUG USE FOR UNKNOWN INDICATION

REACTIONS (3)
  - BALANCE DISORDER [None]
  - GAIT DISTURBANCE [None]
  - STOMACH DISCOMFORT [None]
